FAERS Safety Report 15219899 (Version 1)
Quarter: 2018Q3

REPORT INFORMATION
  Report Type: Spontaneous
  Country: US (occurrence: US)
  Receive Date: 20180704
  Receipt Date: 20180704
  Transmission Date: 20181010
  Serious: Yes (Other)
  Sender: FDA-Public Use
  Company Number: None

PATIENT
  Sex: Female
  Weight: 54 kg

DRUGS (1)
  1. BETAMETHASONE DIPROPIONATE LOTION, USP [Suspect]
     Active Substance: BETAMETHASONE DIPROPIONATE
     Indication: DERMATITIS CONTACT
     Dosage: ?          QUANTITY:1 DROPS;?
     Route: 061
     Dates: start: 20180524, end: 20180524

REACTIONS (4)
  - Hypoaesthesia [None]
  - Sinus tachycardia [None]
  - Obsessive-compulsive disorder [None]
  - Asthenia [None]
